FAERS Safety Report 10534134 (Version 1)
Quarter: 2014Q4

REPORT INFORMATION
  Report Type: Spontaneous
  Country: US (occurrence: None)
  Receive Date: 20141021
  Receipt Date: 20141021
  Transmission Date: 20150529
  Serious: Yes (Hospitalization)
  Sender: FDA-Public Use
  Company Number: None

PATIENT
  Age: 85 Year
  Sex: Female
  Weight: 66.7 kg

DRUGS (1)
  1. ERTAPENEM [Suspect]
     Active Substance: ERTAPENEM
     Indication: SEPSIS PASTEURELLA
     Route: 042
     Dates: start: 20141008, end: 20141011

REACTIONS (5)
  - Unresponsive to stimuli [None]
  - Mental status changes [None]
  - Seizure [None]
  - Renal impairment [None]
  - Hallucination [None]

NARRATIVE: CASE EVENT DATE: 20141012
